FAERS Safety Report 6454898-6 (Version None)
Quarter: 2009Q4

REPORT INFORMATION
  Report Type: 
  Country: None (occurrence: None)
  Receive Date: 20091124
  Receipt Date: 20091112
  Transmission Date: 20100525
  Serious: Yes (Hospitalization, Other)
  Sender: FDA-Public Use
  Company Number: US-ELI_LILLY_AND_COMPANY-US200911003541

PATIENT
  Age: 45 Year
  Sex: Male

DRUGS (4)
  1. CYMBALTA [Suspect]
     Indication: DEPRESSION
     Dosage: 30 MG, DAILY (1/D)
     Dates: start: 20090301
  2. KLONOPIN [Concomitant]
     Dosage: 1 D/F, UNK
  3. SEROQUEL [Concomitant]
     Dosage: 1 D/F, UNK
  4. OPIOIDS [Concomitant]
     Dosage: 1 D/F, UNK

REACTIONS (2)
  - CONVULSION [None]
  - HOSPITALISATION [None]
